FAERS Safety Report 13479945 (Version 1)
Quarter: 2017Q2

REPORT INFORMATION
  Report Type: Spontaneous
  Country: PT (occurrence: PT)
  Receive Date: 20170425
  Receipt Date: 20170425
  Transmission Date: 20170830
  Serious: Yes (Death)
  Sender: FDA-Public Use
  Company Number: PT-SA-2017SA072964

PATIENT
  Age: 70 Year
  Sex: Female
  Weight: 80 kg

DRUGS (14)
  1. LOVENOX [Suspect]
     Active Substance: ENOXAPARIN SODIUM
     Indication: CARDIAC FAILURE CONGESTIVE
     Route: 065
     Dates: start: 20170312, end: 20170313
  2. NIMODIPINE. [Concomitant]
     Active Substance: NIMODIPINE
     Route: 048
  3. PREDNISOLONA [Concomitant]
     Active Substance: PREDNISOLONE
     Route: 048
  4. BUDESONIDE. [Concomitant]
     Active Substance: BUDESONIDE
     Dosage: ROUTE: RESPIRATORY(INHALATION)
  5. HIDROXIZIN [Concomitant]
     Active Substance: HYDROXYZINE HYDROCHLORIDE
     Route: 048
  6. SALBUTAMOL [Concomitant]
     Active Substance: ALBUTEROL
     Route: 065
  7. LACTULOSE. [Concomitant]
     Active Substance: LACTULOSE
     Route: 048
  8. DOXICICLINA [Concomitant]
     Route: 065
  9. FUROSEMIDA [Concomitant]
     Active Substance: FUROSEMIDE
     Route: 048
  10. LOVENOX [Suspect]
     Active Substance: ENOXAPARIN SODIUM
     Indication: ATRIAL FIBRILLATION
     Route: 065
     Dates: start: 20170312, end: 20170313
  11. PARACETAMOL [Concomitant]
     Active Substance: ACETAMINOPHEN
     Route: 048
  12. IPRATROPIUM BROMIDE. [Concomitant]
     Active Substance: IPRATROPIUM BROMIDE
     Route: 065
  13. OMEPRAZOLE. [Concomitant]
     Active Substance: OMEPRAZOLE
     Route: 048
  14. TAZOBACTAM/PIPERACILLIN [Concomitant]
     Route: 065

REACTIONS (4)
  - Intra-abdominal haematoma [Fatal]
  - Death [Fatal]
  - Abdominal pain [Fatal]
  - Anaemia [Fatal]

NARRATIVE: CASE EVENT DATE: 20170313
